FAERS Safety Report 5403913-7 (Version None)
Quarter: 2007Q3

REPORT INFORMATION
  Report Type: 
  Country: None (occurrence: None)
  Receive Date: 20070706
  Receipt Date: 20061107
  Transmission Date: 20080115
  Serious: Yes (Hospitalization)
  Sender: FDA-Public Use
  Company Number: 470317

PATIENT
  Age: 55 Year
  Sex: Male
  Weight: 170 kg

DRUGS (10)
  1. CELLCEPT [Suspect]
     Indication: PROPHYLAXIS AGAINST TRANSPLANT REJECTION
     Dosage: ORAL
     Route: 048
  2. CELLCEPT [Concomitant]
  3. STADOL [Concomitant]
  4. PROGRAF [Concomitant]
  5. FLAGYL [Concomitant]
  6. ZOSYN [Concomitant]
  7. PHENERGAN [Concomitant]
  8. SOLU-MEDROL [Concomitant]
  9. PROVENTIL (SALBUTAMOL) [Concomitant]
  10. ATROVENT [Concomitant]

REACTIONS (2)
  - ABDOMINAL PAIN [None]
  - INFECTION [None]
